FAERS Safety Report 5239600-8 (Version None)
Quarter: 2007Q1

REPORT INFORMATION
  Report Type: 
  Country: None (occurrence: None)
  Receive Date: 20070216
  Receipt Date: 20070207
  Transmission Date: 20070707
  Serious: Yes (Other)
  Sender: FDA-Public Use
  Company Number: US-ROCHE-478315

PATIENT
  Age: 47 Year
  Sex: Female

DRUGS (2)
  1. BONIVA [Suspect]
     Indication: DRUG USE FOR UNKNOWN INDICATION
     Route: 065
     Dates: start: 20060715
  2. ESTROGENS SOL/INJ [Concomitant]

REACTIONS (2)
  - BONE EROSION [None]
  - TOOTH DISORDER [None]
